FAERS Safety Report 13939825 (Version 2)
Quarter: 2018Q4

REPORT INFORMATION
  Report Type: Report from Study
  Country: US (occurrence: US)
  Receive Date: 20170906
  Receipt Date: 20181221
  Transmission Date: 20190204
  Serious: Yes (Other)
  Sender: FDA-Public Use
  Company Number: US-009507513-1707USA006210

PATIENT
  Sex: Female

DRUGS (2)
  1. METFORMIN [Concomitant]
     Active Substance: METFORMIN HYDROCHLORIDE
  2. ZETIA [Suspect]
     Active Substance: EZETIMIBE
     Indication: BLOOD CHOLESTEROL
     Dosage: 10 MILLIGRAM, QD
     Route: 048
     Dates: start: 2017

REACTIONS (7)
  - Abdominal discomfort [Not Recovered/Not Resolved]
  - Product availability issue [Unknown]
  - Road traffic accident [Unknown]
  - Depressed mood [Unknown]
  - Loss of consciousness [Unknown]
  - Drug effect incomplete [Unknown]
  - Nervousness [Unknown]

NARRATIVE: CASE EVENT DATE: 2018
